FAERS Safety Report 7040151-9 (Version None)
Quarter: 2010Q4

REPORT INFORMATION
  Report Type: 
  Country: None (occurrence: None)
  Receive Date: 20101012
  Receipt Date: 20101007
  Transmission Date: 20110411
  Serious: Yes (Death)
  Sender: FDA-Public Use
  Company Number: PHHY2010US65373

PATIENT
  Sex: Female

DRUGS (4)
  1. CLOZARIL [Suspect]
     Indication: SCHIZOAFFECTIVE DISORDER
     Dosage: 250 MG H.S.
     Route: 048
  2. CLOZARIL [Suspect]
     Indication: BIPOLAR DISORDER
  3. SEROQUEL [Concomitant]
     Dosage: 25 MG HS
     Route: 048
  4. EFFEXOR XR [Concomitant]
     Dosage: 37.5 MG
     Route: 048

REACTIONS (1)
  - RESPIRATORY FAILURE [None]
